FAERS Safety Report 4709180-1 (Version None)
Quarter: 2005Q2

REPORT INFORMATION
  Report Type: 
  Country: None (occurrence: None)
  Receive Date: 20050629
  Receipt Date: 20050616
  Transmission Date: 20051028
  Serious: Yes (Hospitalization)
  Sender: FDA-Public Use
  Company Number: THYM-10585

PATIENT
  Age: 32 Year
  Sex: Male
  Weight: 80 kg

DRUGS (4)
  1. THYMOGLOBULIN [Suspect]
     Indication: RENAL TRANSPLANT
     Dosage: 100 MG QD IV
     Route: 042
     Dates: start: 20041209, end: 20041209
  2. MYCOPHENOLATE MOFETIL [Concomitant]
  3. CYCLOSPORINE [Concomitant]
  4. PREDNISONE [Concomitant]

REACTIONS (4)
  - ANAEMIA [None]
  - CYTOMEGALOVIRUS INFECTION [None]
  - PATHOGEN RESISTANCE [None]
  - WHITE BLOOD CELL COUNT DECREASED [None]
